FAERS Safety Report 18901413 (Version 1)
Quarter: 2021Q1

REPORT INFORMATION
  Report Type: Report from Study
  Country: US (occurrence: US)
  Receive Date: 20210216
  Receipt Date: 20210216
  Transmission Date: 20210420
  Serious: Yes (Other)
  Sender: FDA-Public Use
  Company Number: US-JNJFOC-20210137099

PATIENT
  Age: 81 Year
  Sex: Female
  Weight: 75.5 kg

DRUGS (2)
  1. MACITENTAN [Suspect]
     Active Substance: MACITENTAN
     Indication: PULMONARY ARTERIAL HYPERTENSION
     Dosage: 10MG ORALLY DAILY
     Route: 048
  2. COVID?19 VACCINE NOS. [Suspect]
     Active Substance: COVID-19 VACCINE NOS

REACTIONS (10)
  - Product dose omission issue [Unknown]
  - Chest pain [Unknown]
  - Dyspnoea exertional [Unknown]
  - Palpitations [Unknown]
  - Tremor [Unknown]
  - Asthenia [Unknown]
  - Dyspnoea at rest [Unknown]
  - Dysentery [Unknown]
  - Anaemia [Unknown]
  - Malaise [Unknown]

NARRATIVE: CASE EVENT DATE: 20210115
